FAERS Safety Report 6367736-7 (Version None)
Quarter: 2009Q3

REPORT INFORMATION
  Report Type: 
  Country: None (occurrence: None)
  Receive Date: 20090921
  Receipt Date: 20090907
  Transmission Date: 20100115
  Serious: Yes (Other)
  Sender: FDA-Public Use
  Company Number: PHHY2009NZ33411

PATIENT
  Age: 65 Year
  Sex: Female

DRUGS (4)
  1. GLEEVEC [Suspect]
     Indication: CHRONIC MYELOID LEUKAEMIA
     Dosage: UNK
     Route: 048
     Dates: end: 20051111
  2. TASIGNA [Suspect]
  3. VOLTAREN [Concomitant]
  4. PRILOSEC [Concomitant]

REACTIONS (4)
  - BILIARY NEOPLASM [None]
  - JAUNDICE CHOLESTATIC [None]
  - LIVER FUNCTION TEST ABNORMAL [None]
  - NEOPLASM MALIGNANT [None]
